FAERS Safety Report 20950560 (Version 1)
Quarter: 2022Q2

REPORT INFORMATION
  Report Type: Other
  Country: AT (occurrence: None)
  Receive Date: 20220613
  Receipt Date: 20220613
  Transmission Date: 20220721
  Serious: Yes (Other)
  Sender: FDA-Public Use
  Company Number: AT-DEXPHARM-20220803

PATIENT
  Age: 45 Year
  Sex: Female

DRUGS (2)
  1. VENLAFAXINE [Interacting]
     Active Substance: VENLAFAXINE HYDROCHLORIDE
     Indication: Major depression
  2. DULOXETINE [Interacting]
     Active Substance: DULOXETINE
     Indication: Major depression

REACTIONS (5)
  - Colitis microscopic [Unknown]
  - Gastritis [Unknown]
  - Lymphocytic oesophagitis [Unknown]
  - Duodenitis [Unknown]
  - Drug interaction [Unknown]
